FAERS Safety Report 7361916-X (Version None)
Quarter: 2011Q1

REPORT INFORMATION
  Report Type: 
  Country: None (occurrence: None)
  Receive Date: 20110318
  Receipt Date: 20110310
  Transmission Date: 20110831
  Serious: Yes (Other)
  Sender: FDA-Public Use
  Company Number: SE-BRISTOL-MYERS SQUIBB COMPANY-15608763

PATIENT
  Age: 76 Year
  Sex: Male

DRUGS (9)
  1. BLINDED: SAXAGLIPTIN [Suspect]
     Indication: TYPE 2 DIABETES MELLITUS
     Dates: start: 20100524
  2. OMEPRAZOLE [Concomitant]
  3. BLINDED: GLIMEPIRIDE [Suspect]
     Indication: TYPE 2 DIABETES MELLITUS
     Dates: start: 20100524
  4. ACYCLOVIR [Concomitant]
     Dosage: FOR 7 DAYS
  5. LOSARTAN POTASSIUM AND HYDROCHLOROTHIAZIDE [Concomitant]
  6. BLINDED: PLACEBO [Suspect]
     Indication: TYPE 2 DIABETES MELLITUS
     Dates: start: 20100524
  7. METFORMIN HCL [Suspect]
     Indication: TYPE 2 DIABETES MELLITUS
  8. TROMBYL [Concomitant]
  9. SIMVASTATIN [Concomitant]

REACTIONS (1)
  - HERPES ZOSTER MULTI-DERMATOMAL [None]
